FAERS Safety Report 12607961 (Version 1)
Quarter: 2016Q3

REPORT INFORMATION
  Report Type: Spontaneous
  Country: US (occurrence: US)
  Receive Date: 20160729
  Receipt Date: 20160729
  Transmission Date: 20161109
  Serious: Yes (Hospitalization)
  Sender: FDA-Public Use
  Company Number: US-LPDUSPRD-20160658

PATIENT
  Age: 44 Year
  Sex: Male

DRUGS (3)
  1. CYTARABINE. [Concomitant]
     Active Substance: CYTARABINE
     Dosage: DOSE NOT PROVIDED
     Route: 065
  2. ONDANSETRON INJECTION (4420-01) [Suspect]
     Active Substance: ONDANSETRON
     Dosage: GENEROUS AMOUNTS
     Route: 065
  3. VORINOSTAT [Concomitant]
     Active Substance: VORINOSTAT
     Dosage: DOSE NOT PROVIDED
     Route: 065

REACTIONS (4)
  - Brugada syndrome [Recovered/Resolved]
  - Cardiac arrest [Recovered/Resolved]
  - Electrocardiogram QT prolonged [Recovered/Resolved]
  - Torsade de pointes [Recovered/Resolved]
